FAERS Safety Report 6491259-8 (Version None)
Quarter: 2009Q4

REPORT INFORMATION
  Report Type: 
  Country: None (occurrence: None)
  Receive Date: 20091211
  Receipt Date: 20091203
  Transmission Date: 20100525
  Serious: Yes (Other)
  Sender: FDA-Public Use
  Company Number: PHHY2009JP53657

PATIENT
  Age: 70 Year
  Sex: Male

DRUGS (5)
  1. ZOLEDRONATE T29581+ [Suspect]
     Indication: METASTASES TO BONE
     Dosage: 4MG EVERY 4 WEEKS
     Route: 041
     Dates: start: 20071119, end: 20081117
  2. DEXAMETHASONE TAB [Concomitant]
     Indication: PROSTATE CANCER
     Dosage: 1 MG, UNK
     Route: 048
     Dates: start: 20061121, end: 20091101
  3. LENDORMIN [Concomitant]
     Dosage: 0.25MG, UNK
     Route: 048
     Dates: start: 20060417, end: 20091101
  4. TAXOTERE [Concomitant]
     Dosage: 100MG, UNK
     Route: 042
     Dates: start: 20080919, end: 20081117
  5. LEUPLIN [Concomitant]
     Dosage: 11.25MG, UNK
     Route: 042

REACTIONS (1)
  - BONE DISORDER [None]
